FAERS Safety Report 8790472 (Version 1)
Quarter: 2012Q4

REPORT INFORMATION
  Report Type: Spontaneous
  Country: DK (occurrence: None)
  Receive Date: 20120906
  Receipt Date: 20120906
  Transmission Date: 20130627
  Serious: Yes (Hospitalization)
  Sender: FDA-Public Use
  Company Number: 2012MA010639

PATIENT
  Age: 48 Year
  Sex: Female

DRUGS (2)
  1. NAPROXEN [Suspect]
     Indication: PAINFUL KNEE
     Route: 048
     Dates: start: 20120801, end: 20120813
  2. IMODIUM [Concomitant]

REACTIONS (2)
  - Large intestinal haemorrhage [None]
  - Haemoglobin decreased [None]
